FAERS Safety Report 8803471 (Version 1)
Quarter: 2012Q4

REPORT INFORMATION
  Report Type: 
  Country: US (occurrence: US)
  Receive Date: 20120924
  Receipt Date: 20120924
  Transmission Date: 20130627
  Serious: No
  Sender: FDA-Public Use
  Company Number: US-009507513-1209USA007046

PATIENT
  Age: 44 Year
  Sex: Female
  Weight: 71.2 kg

DRUGS (2)
  1. NUVARING [Suspect]
     Indication: CONTRACEPTION
     Dosage: 3 weeks in, 1 week out
     Route: 067
  2. RITALIN [Concomitant]

REACTIONS (1)
  - Metrorrhagia [Unknown]
